FAERS Safety Report 10580760 (Version 1)
Quarter: 2014Q4

REPORT INFORMATION
  Report Type: Spontaneous
  Country: US (occurrence: None)
  Receive Date: 20141112
  Receipt Date: 20141112
  Transmission Date: 20150529
  Serious: Yes (Death, Hospitalization)
  Sender: FDA-Public Use
  Company Number: None

PATIENT
  Age: 73 Year
  Sex: Male
  Weight: 111.13 kg

DRUGS (12)
  1. CRESTOR [Concomitant]
     Active Substance: ROSUVASTATIN CALCIUM
  2. IRON [Concomitant]
     Active Substance: IRON
  3. LISINOPRIL. [Concomitant]
     Active Substance: LISINOPRIL
  4. CPAP [Concomitant]
     Active Substance: DEVICE
  5. LEVOTHYROXINE [Concomitant]
     Active Substance: LEVOTHYROXINE
  6. MULTIVITAMIN [Concomitant]
     Active Substance: VITAMINS
  7. GLIMEPIRIDE. [Concomitant]
     Active Substance: GLIMEPIRIDE
  8. ASPIRIN. [Concomitant]
     Active Substance: ASPIRIN
  9. FENOFIBRATE. [Concomitant]
     Active Substance: FENOFIBRATE
  10. JANUVIA [Suspect]
     Active Substance: SITAGLIPTIN PHOSPHATE
     Indication: TYPE 2 DIABETES MELLITUS
     Dosage: BY MOUTH
     Dates: start: 200906, end: 20140825
  11. JANUVIA [Concomitant]
     Active Substance: SITAGLIPTIN PHOSPHATE
  12. METFORMIN HCL [Concomitant]
     Active Substance: METFORMIN HYDROCHLORIDE

REACTIONS (3)
  - Acute respiratory distress syndrome [None]
  - Pancreatitis acute [None]
  - Acute kidney injury [None]

NARRATIVE: CASE EVENT DATE: 20140826
